FAERS Safety Report 13227572 (Version 4)
Quarter: 2017Q1

REPORT INFORMATION
  Report Type: Spontaneous
  Country: FR (occurrence: FR)
  Receive Date: 20170213
  Receipt Date: 20170227
  Transmission Date: 20170428
  Serious: Yes (Hospitalization)
  Sender: FDA-Public Use
  Company Number: FR-PFIZER INC-2017052050

PATIENT
  Age: 64 Year
  Sex: Male

DRUGS (17)
  1. ALPRAZOLAM. [Suspect]
     Active Substance: ALPRAZOLAM
     Dosage: 0.5 MG, UNK
     Route: 048
     Dates: start: 20170106
  2. ROXITHROMYCINE [Suspect]
     Active Substance: ROXITHROMYCIN
     Dosage: 150 MG, 2X/DAY
     Route: 048
     Dates: start: 20161201, end: 20161221
  3. KARDEGIC [Suspect]
     Active Substance: ASPIRIN LYSINE
     Dosage: 75 MG, DAILY
     Route: 048
     Dates: start: 20161209, end: 20161229
  4. ALFUZOSINE [Suspect]
     Active Substance: ALFUZOSIN HYDROCHLORIDE
     Dosage: 10 MG, DAILY
     Route: 048
     Dates: start: 20161220, end: 20161222
  5. AMIODARONE HCL [Suspect]
     Active Substance: AMIODARONE HYDROCHLORIDE
     Dosage: 1200 MG, UNK
     Route: 042
     Dates: start: 20161205, end: 20161205
  6. AUGMENTIN [Suspect]
     Active Substance: AMOXICILLIN\CLAVULANATE POTASSIUM
     Dosage: 3 G, DAILY
     Route: 042
     Dates: start: 20161210, end: 20161215
  7. PANTOPRAZOLE [Suspect]
     Active Substance: PANTOPRAZOLE SODIUM
     Dosage: 20 MG, DAILY
     Dates: start: 20161210
  8. RAMIPRIL. [Suspect]
     Active Substance: RAMIPRIL
     Dosage: 1.25 MG, DAILY
     Route: 048
     Dates: start: 20161208, end: 20161223
  9. ZOPICLONE [Suspect]
     Active Substance: ZOPICLONE
     Dosage: 7.25 MG, UNK
     Route: 048
     Dates: start: 20161207
  10. FUROSEMIDE. [Suspect]
     Active Substance: FUROSEMIDE
     Dosage: UNK
     Route: 048
     Dates: start: 20161207, end: 20170103
  11. PERINDOPRIL [Suspect]
     Active Substance: PERINDOPRIL
     Dosage: UNK
     Dates: start: 20161229
  12. PREVISCAN [Suspect]
     Active Substance: FLUINDIONE
     Dosage: 20 MG, UNK
     Route: 048
     Dates: start: 20161229
  13. AUGMENTIN [Suspect]
     Active Substance: AMOXICILLIN\CLAVULANATE POTASSIUM
     Dosage: 3 G, DAILY
     Route: 048
     Dates: start: 20161216, end: 20161221
  14. CALCIPARINE [Suspect]
     Active Substance: HEPARIN CALCIUM
     Dosage: UNK
     Route: 058
     Dates: start: 20161205
  15. BISOPROLOL HEMIFUMARATE [Suspect]
     Active Substance: BISOPROLOL FUMARATE
     Dosage: UNK
     Route: 048
     Dates: start: 20161205
  16. DIGOXIN. [Suspect]
     Active Substance: DIGOXIN
     Dosage: 2 DF, 1X/DAY
     Route: 042
     Dates: start: 20161208, end: 20161208
  17. DIGOXIN. [Suspect]
     Active Substance: DIGOXIN
     Dosage: 1 DF, DAILY
     Route: 042
     Dates: start: 20161209, end: 20161220

REACTIONS (3)
  - Jaundice [Not Recovered/Not Resolved]
  - Hepatitis [Recovered/Resolved]
  - Cholestasis [Not Recovered/Not Resolved]

NARRATIVE: CASE EVENT DATE: 20170112
